FAERS Safety Report 8776893 (Version 1)
Quarter: 2012Q4

REPORT INFORMATION
  Report Type: 
  Country: US (occurrence: US)
  Receive Date: 20120911
  Receipt Date: 20120911
  Transmission Date: 20130627
  Serious: Yes (Hospitalization)
  Sender: FDA-Public Use
  Company Number: US-COVIDIEN/TYCO HEALTHCARE/MALLINCKRODT-T201203351

PATIENT
  Age: 71 Year
  Sex: Male

DRUGS (1)
  1. CONRAY [Suspect]
     Indication: SPINAL MYELOGRAM
     Dosage: 18 ml, single
     Route: 037

REACTIONS (7)
  - Sinus tachycardia [Recovered/Resolved]
  - Atrial fibrillation [Recovered/Resolved]
  - Blood pressure increased [Unknown]
  - Muscle spasms [Recovered/Resolved]
  - Musculoskeletal stiffness [Recovered/Resolved]
  - Asthenia [Not Recovered/Not Resolved]
  - Incorrect route of drug administration [Recovered/Resolved]
